FAERS Safety Report 9838438 (Version 1)
Quarter: 2014Q1

REPORT INFORMATION
  Report Type: Spontaneous
  Country: US (occurrence: US)
  Receive Date: 20140123
  Receipt Date: 20140123
  Transmission Date: 20141002
  Serious: No
  Sender: FDA-Public Use
  Company Number: US-ASTELLAS-2012US011378

PATIENT
  Age: 65 Year
  Sex: Female

DRUGS (2)
  1. TARCEVA [Suspect]
     Indication: NON-SMALL CELL LUNG CANCER METASTATIC
     Dosage: 150 MG, UNKNOWN/D
     Route: 048
     Dates: start: 201208
  2. TOBRADEX [Suspect]
     Indication: EYELID CYST
     Dosage: UNK
     Route: 065

REACTIONS (7)
  - Eyelid cyst [Unknown]
  - Vulvovaginal pruritus [Unknown]
  - Rash maculo-papular [Unknown]
  - Acne [Unknown]
  - Hair growth abnormal [Unknown]
  - Hair growth abnormal [Unknown]
  - Diarrhoea [Unknown]
